FAERS Safety Report 12756004 (Version 1)
Quarter: 2016Q3

REPORT INFORMATION
  Report Type: Spontaneous
  Country: US (occurrence: US)
  Receive Date: 20160916
  Receipt Date: 20160916
  Transmission Date: 20161109
  Serious: No
  Sender: FDA-Public Use
  Company Number: US-BAUSCH-BL-2016-015945

PATIENT
  Age: 24 Year
  Sex: Female
  Weight: 45.4 kg

DRUGS (3)
  1. ATRALIN [Suspect]
     Active Substance: TRETINOIN
     Indication: ACNE
     Dosage: APPLIED ONCE NIGHTLY ON HER FACE
     Route: 061
     Dates: start: 201606, end: 201606
  2. ATRALIN [Suspect]
     Active Substance: TRETINOIN
     Dosage: APPLIED ONCE NIGHTLY ON HER FACE
     Route: 061
     Dates: start: 201606
  3. TRETINOIN GEL 0.01% [Suspect]
     Active Substance: TRETINOIN
     Indication: ACNE
     Dosage: APPLIED ONCE NIGHTLY ON HER FACE
     Route: 061
     Dates: start: 201606, end: 201606

REACTIONS (3)
  - Application site pain [Recovered/Resolved]
  - Product physical consistency issue [Unknown]
  - Drug ineffective [Unknown]

NARRATIVE: CASE EVENT DATE: 201606
